FAERS Safety Report 10722975 (Version 4)
Quarter: 2015Q2

REPORT INFORMATION
  Report Type: Report from Study
  Country: IT (occurrence: None)
  Receive Date: 20150114
  Receipt Date: 20150504
  Transmission Date: 20150821
  Serious: Yes (Hospitalization, Other)
  Sender: FDA-Public Use
  Company Number: 2014MPI01755

PATIENT
  Age: 58 Year
  Sex: Female
  Weight: 60 kg

DRUGS (4)
  1. BRENTUXIMAB VEDOTIN (BRENTUXIMAB VEDOTIN) INJECTION [Suspect]
     Active Substance: BRENTUXIMAB VEDOTIN
     Indication: HODGKIN^S DISEASE
     Route: 042
     Dates: start: 20141126, end: 20141223
  2. DACARBAZINE (DACARBAZINE) INJECTION [Suspect]
     Active Substance: DACARBAZINE
     Indication: HODGKIN^S DISEASE
     Dosage: 375 MG/KG, UNK, INTRAVENOUS
     Route: 042
     Dates: start: 20141126, end: 20141223
  3. DOXORUBICIN (DOXORUBICIN) INJECTION [Suspect]
     Active Substance: DOXORUBICIN
     Indication: HODGKIN^S DISEASE
     Dosage: 25 MG/KG , UNK, INTRAVENOUS
     Route: 042
     Dates: start: 20141126, end: 20141223
  4. VINBLASTINE (VINBLASTINE)  INJECTION [Suspect]
     Active Substance: VINBLASTINE
     Indication: HODGKIN^S DISEASE
     Dosage: 6 MG/KG , UNK, INTRAVENOUS
     Route: 042
     Dates: start: 20141126, end: 20141223

REACTIONS (4)
  - Ileus paralytic [None]
  - Syncope [None]
  - Febrile neutropenia [None]
  - Hypotension [None]

NARRATIVE: CASE EVENT DATE: 20141229
